FAERS Safety Report 5575619-5 (Version None)
Quarter: 2007Q4

REPORT INFORMATION
  Report Type: 
  Country: None (occurrence: None)
  Receive Date: 20071130
  Receipt Date: 20070913
  Transmission Date: 20080405
  Serious: No
  Sender: FDA-Public Use
  Company Number: US200709002990

PATIENT
  Sex: Female

DRUGS (5)
  1. BYETTA [Suspect]
     Indication: TYPE 2 DIABETES MELLITUS
     Dosage: 5 UG, 2/D, SUBCUTANEOUS
     Route: 058
     Dates: start: 20070401
  2. EXENATIDE (EXENATIDE) [Concomitant]
  3. METFORMIN HCL [Concomitant]
  4. NOVOLOG MIX 70/30 [Concomitant]
  5. COUMADIN [Concomitant]

REACTIONS (3)
  - DERMATITIS CONTACT [None]
  - INTERNATIONAL NORMALISED RATIO INCREASED [None]
  - SINUSITIS [None]
